FAERS Safety Report 4440953-9 (Version None)
Quarter: 2004Q3

REPORT INFORMATION
  Report Type: 
  Country: None (occurrence: None)
  Receive Date: 20040728
  Receipt Date: 20040406
  Transmission Date: 20050211
  Serious: No
  Sender: FDA-Public Use
  Company Number: USA040464510

PATIENT
  Sex: Female
  Weight: 29 kg

DRUGS (1)
  1. STRATTERA [Suspect]
     Dosage: 50 MG DAY

REACTIONS (2)
  - DISTURBANCE IN ATTENTION [None]
  - PRESCRIBED OVERDOSE [None]
